FAERS Safety Report 14522506 (Version 7)
Quarter: 2018Q4

REPORT INFORMATION
  Report Type: Spontaneous
  Country: PT (occurrence: PT)
  Receive Date: 20180212
  Receipt Date: 20181127
  Transmission Date: 20190204
  Serious: Yes (Death, Hospitalization, Other)
  Sender: FDA-Public Use
  Company Number: PHHY2017PT200721

PATIENT
  Age: 47 Year
  Sex: Female

DRUGS (8)
  1. CICLOSPORIN [Suspect]
     Active Substance: CYCLOSPORINE
     Indication: SYSTEMIC LUPUS ERYTHEMATOSUS
     Dosage: 150 MG, QD
     Route: 065
  2. IMMUNOGLOBULIN HUMAN NORMAL [Suspect]
     Active Substance: HUMAN IMMUNOGLOBULIN G
     Indication: SYSTEMIC LUPUS ERYTHEMATOSUS
     Dosage: 2 G/KG, QD
     Route: 042
  3. MYCOPHENOLATE MOFETIL. [Suspect]
     Active Substance: MYCOPHENOLATE MOFETIL
     Indication: SYSTEMIC LUPUS ERYTHEMATOSUS
     Dosage: 3 G, QD
     Route: 065
  4. FILGRASTIM [Suspect]
     Active Substance: FILGRASTIM
     Indication: FEBRILE NEUTROPENIA
     Dosage: UNK
     Route: 065
  5. AZATHIOPRINE. [Suspect]
     Active Substance: AZATHIOPRINE
     Indication: SYSTEMIC LUPUS ERYTHEMATOSUS
     Dosage: 75 MG, UNK
     Route: 065
  6. MYCOPHENOLATE MOFETIL. [Suspect]
     Active Substance: MYCOPHENOLATE MOFETIL
     Dosage: 2 G/KG, QD
     Route: 065
  7. PREDNISOLONE. [Suspect]
     Active Substance: PREDNISOLONE
     Indication: SYSTEMIC LUPUS ERYTHEMATOSUS
     Dosage: 1 MG/KG, QD
     Route: 065
  8. METHYLPREDNISOLONE. [Suspect]
     Active Substance: METHYLPREDNISOLONE
     Indication: SYSTEMIC LUPUS ERYTHEMATOSUS
     Dosage: 500 MG, UNK
     Route: 042

REACTIONS (21)
  - Large intestinal ulcer [Unknown]
  - Cytomegalovirus infection [Fatal]
  - Off label use [Fatal]
  - Glomerulonephritis [Unknown]
  - Pancytopenia [Unknown]
  - Diarrhoea [Unknown]
  - Oedema peripheral [Unknown]
  - Chronic kidney disease [Unknown]
  - Colitis [Fatal]
  - Anaemia [Fatal]
  - Stoma site haemorrhage [Fatal]
  - Intentional product use issue [Fatal]
  - Abdominal pain [Unknown]
  - Febrile neutropenia [Unknown]
  - Haematochezia [Unknown]
  - Haemodynamic instability [Unknown]
  - Vasculitis [Unknown]
  - Pyrexia [Unknown]
  - Abdominal discomfort [Unknown]
  - Hypoalbuminaemia [Unknown]
  - Product use in unapproved indication [Unknown]
